FAERS Safety Report 23880368 (Version 1)
Quarter: 2024Q2

REPORT INFORMATION
  Report Type: Spontaneous
  Country: US (occurrence: None)
  Receive Date: 20240521
  Receipt Date: 20240521
  Transmission Date: 20240715
  Serious: Yes (Hospitalization)
  Sender: FDA-Public Use
  Company Number: None

PATIENT
  Age: 75 Year
  Sex: Male
  Weight: 102 kg

DRUGS (1)
  1. CEFAZOLIN SODIUM [Suspect]
     Active Substance: CEFAZOLIN SODIUM
     Indication: Infection
     Dosage: 2 GM TID IV
     Route: 042
     Dates: start: 20240403, end: 20240412

REACTIONS (2)
  - Thrombophlebitis [None]
  - Toe amputation [None]

NARRATIVE: CASE EVENT DATE: 20240412
